FAERS Safety Report 15900219 (Version 1)
Quarter: 2019Q1

REPORT INFORMATION
  Report Type: Spontaneous
  Country: US (occurrence: US)
  Receive Date: 20190201
  Receipt Date: 20190201
  Transmission Date: 20190417
  Serious: Yes (Hospitalization, Other)
  Sender: FDA-Public Use
  Company Number: US-REGENERON PHARMACEUTICALS, INC.-2019-14450

PATIENT

DRUGS (3)
  1. BETADINE [Suspect]
     Active Substance: POVIDONE-IODINE
     Indication: PRODUCT USED FOR UNKNOWN INDICATION
  2. EYLEA [Suspect]
     Active Substance: AFLIBERCEPT
     Dosage: EVERY MONTH TO 6 WEEKS IN THE RIGHT EYE
     Dates: start: 201812
  3. EYLEA [Suspect]
     Active Substance: AFLIBERCEPT
     Indication: MACULAR DEGENERATION
     Dosage: EVERY MONTH TO 6 WEEKS IN THE RIGHT EYE
     Dates: start: 2018

REACTIONS (9)
  - Eye discharge [Unknown]
  - Eye haemorrhage [Recovered/Resolved]
  - Hospitalisation [Recovered/Resolved]
  - Mitral valve stenosis [Unknown]
  - Ejection fraction decreased [Unknown]
  - Nocturnal dyspnoea [Unknown]
  - Eye pain [Unknown]
  - Eye swelling [Unknown]
  - Aortic valve stenosis [Unknown]

NARRATIVE: CASE EVENT DATE: 201805
